FAERS Safety Report 8343907-5 (Version None)
Quarter: 2012Q2

REPORT INFORMATION
  Report Type: 
  Country: None (occurrence: None)
  Receive Date: 20120508
  Receipt Date: 20101018
  Transmission Date: 20120825
  Serious: No
  Sender: FDA-Public Use
  Company Number: US-TEVA-2010005028

PATIENT
  Sex: Male
  Weight: 95.34 kg

DRUGS (5)
  1. ZOLOFT [Concomitant]
  2. CADUET [Concomitant]
  3. TREANDA [Suspect]
     Indication: CHRONIC LYMPHOCYTIC LEUKAEMIA
     Route: 042
     Dates: start: 20100801
  4. ACIPHEX [Concomitant]
  5. MAXZIDE [Concomitant]

REACTIONS (8)
  - BURNING SENSATION [None]
  - VOMITING [None]
  - PYREXIA [None]
  - HEADACHE [None]
  - DRY MOUTH [None]
  - DYSGEUSIA [None]
  - NAUSEA [None]
  - CHILLS [None]
